FAERS Safety Report 9753106 (Version 1)
Quarter: 2013Q4

REPORT INFORMATION
  Report Type: Spontaneous
  Country: US (occurrence: US)
  Receive Date: 20131213
  Receipt Date: 20131213
  Transmission Date: 20140711
  Serious: No
  Sender: FDA-Public Use
  Company Number: US-GILEAD-2010-0026334

PATIENT
  Sex: Female
  Weight: 95.25 kg

DRUGS (7)
  1. LETAIRIS [Suspect]
     Indication: PULMONARY ARTERIAL HYPERTENSION
     Route: 048
     Dates: start: 20090608
  2. WARFARIN [Concomitant]
  3. MESTINON [Concomitant]
  4. GAMUNEX [Concomitant]
  5. LISINOPRIL [Concomitant]
  6. VENTAVIS [Concomitant]
  7. OXYGEN [Concomitant]

REACTIONS (1)
  - Malaise [Unknown]
